FAERS Safety Report 10260083 (Version 2)
Quarter: 2014Q2

REPORT INFORMATION
  Report Type: Report from Study
  Country: US (occurrence: US)
  Receive Date: 20140625
  Receipt Date: 20140627
  Transmission Date: 20141212
  Serious: Yes (Other)
  Sender: FDA-Public Use
  Company Number: US-ABBVIE-14P-163-1249984-00

PATIENT
  Age: 67 Year
  Sex: Male

DRUGS (3)
  1. HUMIRA [Suspect]
     Indication: PSORIASIS
  2. CHOLESTEROL MEDICATION [Concomitant]
     Indication: BLOOD CHOLESTEROL
  3. ANTIHISTAMINE [Concomitant]
     Indication: HYPERSENSITIVITY

REACTIONS (6)
  - Urethral obstruction [Recovered/Resolved]
  - Exostosis [Recovered/Resolved]
  - Surgery [Recovered/Resolved]
  - Knee arthroplasty [Recovered/Resolved]
  - Knee arthroplasty [Recovered/Resolved]
  - Injection site extravasation [Unknown]
